FAERS Safety Report 8013708-6 (Version None)
Quarter: 2011Q4

REPORT INFORMATION
  Report Type: 
  Country: None (occurrence: None)
  Receive Date: 20111229
  Receipt Date: 20111216
  Transmission Date: 20120403
  Serious: Yes (Hospitalization, Other)
  Sender: FDA-Public Use
  Company Number: US-ELI_LILLY_AND_COMPANY-US201103005881

PATIENT
  Sex: Female

DRUGS (16)
  1. PREVACID [Concomitant]
     Indication: GASTROOESOPHAGEAL REFLUX DISEASE
  2. SIMVASTATIN [Concomitant]
     Dosage: 40 MG, QD
  3. LANSOPRAZOLE [Concomitant]
     Dosage: 30 MG, QD
  4. FORTEO [Suspect]
     Dosage: 20 UG, QD
  5. FORTEO [Suspect]
     Dosage: 20 UG, QD
  6. VITAMIN D [Concomitant]
     Dosage: UNK, BID
  7. VITAMIN K TAB [Concomitant]
  8. FORTEO [Suspect]
     Dosage: 20 UG, QD
  9. LEFLUNOMIDE [Concomitant]
     Dosage: 20 MG, UNKNOWN
  10. PREDNISONE [Concomitant]
     Dosage: 5 MG, QOD
  11. FORTEO [Suspect]
     Indication: OSTEOPOROSIS
     Dosage: 20 UG, QD
     Route: 065
     Dates: start: 20101221
  12. VITAMIN D [Concomitant]
     Dosage: 2000 IU, BID
  13. WARFARIN SODIUM [Concomitant]
     Dosage: 2 MG, UNKNOWN
  14. ATENOLOL [Concomitant]
     Dosage: 50 MG, UNKNOWN
  15. MULTI-VITAMIN [Concomitant]
  16. CALCIUM ACETATE [Concomitant]
     Dosage: UNK, BID

REACTIONS (15)
  - MOVEMENT DISORDER [None]
  - ADVERSE DRUG REACTION [None]
  - PULMONARY EMBOLISM [None]
  - BRONCHITIS [None]
  - STRESS [None]
  - GALLBLADDER OPERATION [None]
  - DYSPNOEA [None]
  - RHEUMATOID ARTHRITIS [None]
  - BACK PAIN [None]
  - PNEUMONIA [None]
  - INJECTION SITE HAEMATOMA [None]
  - WEIGHT DECREASED [None]
  - ANXIETY [None]
  - CONTUSION [None]
  - INSOMNIA [None]
